FAERS Safety Report 10215398 (Version 1)
Quarter: 2014Q2

REPORT INFORMATION
  Report Type: Spontaneous
  Country: US (occurrence: US)
  Receive Date: 20140604
  Receipt Date: 20140604
  Transmission Date: 20141212
  Serious: Yes (Death)
  Sender: FDA-Public Use
  Company Number: US-ROCHE-1411115

PATIENT
  Age: 82 Year
  Sex: Male

DRUGS (2)
  1. RITUXAN [Suspect]
     Indication: GRANULOMATOSIS WITH POLYANGIITIS
     Route: 065
  2. RITUXAN [Suspect]
     Indication: NIEMANN-PICK DISEASE

REACTIONS (1)
  - Death [Fatal]
